FAERS Safety Report 9088573 (Version 1)
Quarter: 2013Q1

REPORT INFORMATION
  Report Type: Spontaneous
  Country: FR (occurrence: FR)
  Receive Date: 20130131
  Receipt Date: 20130131
  Transmission Date: 20140127
  Serious: Yes (Death, Hospitalization)
  Sender: FDA-Public Use
  Company Number: FR-B.I. PHARMACEUTICALS,INC./RIDGEFIELD-2013-FF-00248FF

PATIENT
  Age: 87 None
  Sex: Female

DRUGS (13)
  1. PRADAXA [Suspect]
     Indication: ATRIAL FIBRILLATION
     Dosage: 220 MG
     Route: 048
     Dates: start: 20121208, end: 201301
  2. HEMIGOXINE [Concomitant]
     Dosage: 0.125 MG
     Route: 048
  3. CORDARONE [Concomitant]
     Dosage: 200 MG
     Route: 048
  4. DUROGESIC [Concomitant]
     Dosage: 12 ?G/HOUR
  5. MOTILIUM [Concomitant]
     Dosage: 30 MG
     Route: 048
  6. FORTZAAR [Concomitant]
     Dosage: 100 MG/25 MG HALF TABLET A DAY
     Route: 048
  7. TAHOR [Concomitant]
     Dosage: 40 MG
     Route: 048
  8. LOXEN [Concomitant]
     Dosage: 100 MG
     Route: 048
  9. LEXOMIL [Concomitant]
     Dosage: 3 MG
     Route: 048
  10. IMOVANE [Concomitant]
     Dosage: 7.5 MG
     Route: 048
  11. NITRIDERM [Concomitant]
     Route: 062
  12. EFFEXOR [Concomitant]
     Dosage: 75 MG
     Route: 048
  13. DAFALGAN [Concomitant]
     Route: 048

REACTIONS (10)
  - Cardiogenic shock [Fatal]
  - Ischaemic cardiomyopathy [Fatal]
  - Rectal haemorrhage [Unknown]
  - Overdose [Unknown]
  - Nausea [Unknown]
  - Diarrhoea [Unknown]
  - Melaena [Unknown]
  - Altered state of consciousness [Unknown]
  - Circulatory collapse [Unknown]
  - Bradycardia [Unknown]
